FAERS Safety Report 8092265 (Version 3)
Quarter: 2012Q4

REPORT INFORMATION
  Report Type: 
  Country: JP (occurrence: JP)
  Receive Date: 20110816
  Receipt Date: 20120921
  Transmission Date: 20130627
  Serious: Yes (Hospitalization, Other)
  Sender: FDA-Public Use
  Company Number: JP-ABBOTT-11P-087-0845570-00

PATIENT
  Age: 22 Year
  Sex: Female

DRUGS (3)
  1. HUMIRA [Suspect]
     Indication: CROHN^S DISEASE
     Dosage: 160 mg
     Route: 058
     Dates: start: 20110525, end: 20110525
  2. HUMIRA [Suspect]
  3. HUMIRA [Suspect]
     Route: 058
     Dates: end: 20110727

REACTIONS (1)
  - Anaemia [Unknown]
